FAERS Safety Report 15201875 (Version 2)
Quarter: 2018Q3

REPORT INFORMATION
  Report Type: Spontaneous
  Country: FR (occurrence: FR)
  Receive Date: 20180726
  Receipt Date: 20180813
  Transmission Date: 20181010
  Serious: No
  Sender: FDA-Public Use
  Company Number: FR-ELI_LILLY_AND_COMPANY-FR201807010340

PATIENT
  Age: 44 Year
  Sex: Female

DRUGS (2)
  1. PROZAC [Suspect]
     Active Substance: FLUOXETINE HYDROCHLORIDE
     Indication: PRODUCT USED FOR UNKNOWN INDICATION
     Dosage: UNK, UNKNOWN
     Route: 065
     Dates: start: 2001
  2. ZYPREXA [Suspect]
     Active Substance: OLANZAPINE
     Indication: PSYCHOTIC DISORDER
     Dosage: UNK, UNKNOWN
     Route: 065
     Dates: start: 2001

REACTIONS (6)
  - Weight increased [Unknown]
  - Breast haemorrhage [Recovered/Resolved]
  - Amenorrhoea [Unknown]
  - Hyperhidrosis [Unknown]
  - Alopecia [Unknown]
  - Urge incontinence [Unknown]

NARRATIVE: CASE EVENT DATE: 201806
